FAERS Safety Report 7373712-8 (Version None)
Quarter: 2011Q1

REPORT INFORMATION
  Report Type: 
  Country: None (occurrence: None)
  Receive Date: 20110325
  Receipt Date: 20100916
  Transmission Date: 20110831
  Serious: No
  Sender: FDA-Public Use
  Company Number: US-MYLANLABS-2010S1016930

PATIENT
  Age: 32 Year
  Sex: Male

DRUGS (4)
  1. DIAZEPAM [Concomitant]
     Dosage: AS NEEDED
     Route: 065
  2. SERTRALINE HYDROCHLORIDE [Suspect]
     Dosage: 25MG TABLET CUT INTO 8 PIECES; ADDITIONAL 3.125MG WAS ADDED EVERY 3 DAYS
     Route: 048
  3. SERTRALINE HYDROCHLORIDE [Suspect]
     Dosage: 25MG TABLET CUT INTO 8 PIECES; ADDITIONAL 3.125MG WAS ADDED EVERY 3 DAYS
     Route: 048
  4. SERTRALINE HYDROCHLORIDE [Suspect]
     Indication: PANIC DISORDER WITH AGORAPHOBIA
     Dosage: 25MG TABLET CUT INTO 8 PIECES; ADDITIONAL 3.125MG WAS ADDED EVERY 3 DAYS
     Route: 048

REACTIONS (4)
  - EJACULATION DELAYED [None]
  - ABNORMAL DREAMS [None]
  - BLOOD CAFFEINE INCREASED [None]
  - NIGHT SWEATS [None]
